FAERS Safety Report 9379531 (Version 2)
Quarter: 2013Q3

REPORT INFORMATION
  Report Type: Spontaneous
  Country: US (occurrence: US)
  Receive Date: 20130702
  Receipt Date: 20130715
  Transmission Date: 20140515
  Serious: Yes (Other)
  Sender: FDA-Public Use
  Company Number: US-PFIZER INC-2013194342

PATIENT
  Age: 45 Year
  Sex: Female
  Weight: 79 kg

DRUGS (12)
  1. CELEBREX [Suspect]
     Indication: ARTHRITIS
     Dosage: 200 MG, 2X/DAY
     Route: 048
  2. METFORMIN [Concomitant]
     Dosage: 500 MG, 2X/DAY
  3. FOLIC ACID [Concomitant]
     Dosage: 1 MG, 1X/DAY
  4. CITALOPRAM [Concomitant]
     Dosage: 20 MG, 1X/DAY
  5. TRAMADOL [Concomitant]
     Dosage: 50 MG, 4X/DAY
  6. TRAZODONE [Concomitant]
     Dosage: 100 MG, AS NEEDED
  7. GEMFIBROZIL [Concomitant]
     Dosage: 600 MG, 2X/DAY
  8. POTASSIUM CITRATE [Concomitant]
     Dosage: 10 MEQ, 4X/DAY
  9. OMEPRAZOLE [Concomitant]
     Dosage: 20 MG, 2X/DAY
  10. LORAZEPAM [Concomitant]
     Dosage: 0.5 MG, AS NEEDED
  11. HYDROCHLOROTHIAZIDE/TRIAMTERENE [Concomitant]
     Dosage: 25/37.5 MG, UNK
  12. METHOTREXATE [Concomitant]
     Dosage: 2.5 MG, UNK

REACTIONS (2)
  - Hip fracture [Unknown]
  - Osteoarthritis [Unknown]
